FAERS Safety Report 14906779 (Version 2)
Quarter: 2018Q4

REPORT INFORMATION
  Report Type: Spontaneous
  Country: US (occurrence: US)
  Receive Date: 20180517
  Receipt Date: 20181127
  Transmission Date: 20190204
  Serious: No
  Sender: FDA-Public Use
  Company Number: US-SA-2016SA031873

PATIENT
  Age: 70 Year
  Sex: Male
  Weight: 124.74 kg

DRUGS (9)
  1. LANTUS [Suspect]
     Active Substance: INSULIN GLARGINE
     Dosage: 56 DF,HS
     Route: 058
     Dates: start: 20170608
  2. COREG [Concomitant]
     Active Substance: CARVEDILOL
     Dosage: UNK UNK,UNK
     Route: 065
     Dates: start: 20170208
  3. PLAVIX [Concomitant]
     Active Substance: CLOPIDOGREL BISULFATE
     Indication: CEREBROVASCULAR ACCIDENT
     Dosage: UNK UNK,UNK
     Route: 065
     Dates: start: 20161102
  4. LIPITOR [Concomitant]
     Active Substance: ATORVASTATIN CALCIUM
     Indication: HYPERCHOLESTEROLAEMIA
     Dosage: UNK UNK,UNK
     Route: 065
     Dates: start: 20130417
  5. GLUCOTROL [Concomitant]
     Active Substance: GLIPIZIDE
     Indication: TYPE 2 DIABETES MELLITUS
     Dosage: UNK UNK,UNK
     Route: 065
     Dates: start: 20140610
  6. LANTUS [Suspect]
     Active Substance: INSULIN GLARGINE
     Indication: TYPE 2 DIABETES MELLITUS
     Dosage: 30 DF,QD
     Route: 058
     Dates: start: 201509
  7. LANTUS [Suspect]
     Active Substance: INSULIN GLARGINE
     Dosage: 64 DF,HS
     Route: 058
     Dates: start: 2016
  8. LANTUS [Suspect]
     Active Substance: INSULIN GLARGINE
     Dosage: 55 IU, QD
  9. ARICEPT [Concomitant]
     Active Substance: DONEPEZIL HYDROCHLORIDE
     Indication: DEMENTIA ALZHEIMER^S TYPE
     Dosage: UNK UNK,UNK
     Route: 065
     Dates: start: 20160912

REACTIONS (6)
  - Blood glucose increased [Unknown]
  - Injection site injury [Unknown]
  - Thyroid disorder [Unknown]
  - Memory impairment [Unknown]
  - Distractibility [Unknown]
  - Device operational issue [Unknown]
